FAERS Safety Report 19943257 (Version 1)
Quarter: 2021Q4

REPORT INFORMATION
  Report Type: Spontaneous
  Country: US (occurrence: US)
  Receive Date: 20211011
  Receipt Date: 20211011
  Transmission Date: 20220303
  Serious: No
  Sender: FDA-Public Use
  Company Number: US-INTRA-CELLULAR THERAPIES, INC.-2021ICT00358

PATIENT
  Sex: Male

DRUGS (3)
  1. CAPLYTA [Suspect]
     Active Substance: LUMATEPERONE
     Indication: Schizophrenia
     Dosage: 42 MG, 1X/DAY
     Route: 048
  2. RISPERDAL [Concomitant]
     Active Substance: RISPERIDONE
     Dosage: UNK ^TAPERING OFF^
  3. SEROQUEL [Concomitant]
     Active Substance: QUETIAPINE FUMARATE
     Dosage: 800 MG

REACTIONS (3)
  - Headache [Recovered/Resolved]
  - Somnolence [Recovered/Resolved]
  - Drug ineffective [Recovered/Resolved]
